FAERS Safety Report 15117613 (Version 3)
Quarter: 2018Q3

REPORT INFORMATION
  Report Type: Report from Study
  Country: CA (occurrence: CA)
  Receive Date: 20180706
  Receipt Date: 20180807
  Transmission Date: 20181010
  Serious: Yes (Hospitalization)
  Sender: FDA-Public Use
  Company Number: CA-HLSUS-2018-CA-000701

PATIENT
  Sex: Male

DRUGS (1)
  1. CLOZARIL [Suspect]
     Active Substance: CLOZAPINE
     Route: 048
     Dates: start: 19951121, end: 20180726

REACTIONS (4)
  - Dysphagia [Unknown]
  - Necrotising fasciitis [Unknown]
  - Throat cancer [Unknown]
  - Lip and/or oral cavity cancer [Unknown]
